FAERS Safety Report 7031004-0 (Version None)
Quarter: 2010Q4

REPORT INFORMATION
  Report Type: 
  Country: None (occurrence: None)
  Receive Date: 20101006
  Receipt Date: 20100713
  Transmission Date: 20110411
  Serious: Yes (Other)
  Sender: FDA-Public Use
  Company Number: US-BRISTOL-MYERS SQUIBB COMPANY-15172661

PATIENT
  Age: 84 Year
  Sex: Female
  Weight: 48 kg

DRUGS (5)
  1. KENALOG-40 [Suspect]
     Dosage: 1 DF = 40MG/ML
     Route: 030
     Dates: start: 20100101, end: 20100101
  2. LIDOCAINE [Suspect]
  3. ASPIRIN [Concomitant]
  4. SIMVASTATIN [Concomitant]
  5. ELOCON [Concomitant]

REACTIONS (1)
  - DRUG HYPERSENSITIVITY [None]
